FAERS Safety Report 21384664 (Version 2)
Quarter: 2022Q4

REPORT INFORMATION
  Report Type: Spontaneous
  Country: US (occurrence: US)
  Receive Date: 20220928
  Receipt Date: 20221014
  Transmission Date: 20230112
  Serious: No
  Sender: FDA-Public Use
  Company Number: US-PFIZER INC-202201188466

PATIENT
  Age: 70 Year
  Sex: Female
  Weight: 110 kg

DRUGS (5)
  1. PAXLOVID [Suspect]
     Active Substance: NIRMATRELVIR\RITONAVIR
     Indication: COVID-19 treatment
     Dosage: UNK (USE OF PAXLOVID 300/100)
     Route: 048
     Dates: start: 20220914, end: 20220919
  2. ALBUTEROL [Concomitant]
     Active Substance: ALBUTEROL
     Dosage: UNK (ALBUTEROL 90 MCG INHALER)
     Route: 055
     Dates: start: 20220914
  3. BENZONATATE [Concomitant]
     Active Substance: BENZONATATE
     Dosage: UNK
     Route: 048
     Dates: start: 20220914
  4. VITAMIN D3 [Concomitant]
     Active Substance: CHOLECALCIFEROL
     Dosage: UNK, DAILY (VITAMIN D 1000 UNIT TABS)
     Route: 048
     Dates: start: 20220711
  5. OMEPRAZOLE [Concomitant]
     Active Substance: OMEPRAZOLE
     Dosage: UNK, DAILY (OMEPRAZOLE 20 MG EC CAPSULES)
     Route: 048
     Dates: start: 20220222

REACTIONS (3)
  - Anxiety [Recovered/Resolved]
  - Somnambulism [Recovered/Resolved]
  - Akathisia [Recovered/Resolved]

NARRATIVE: CASE EVENT DATE: 20220915
